FAERS Safety Report 20400000 (Version 2)
Quarter: 2022Q1

REPORT INFORMATION
  Report Type: Spontaneous
  Country: US (occurrence: US)
  Receive Date: 20220131
  Receipt Date: 20220201
  Transmission Date: 20220423
  Serious: No
  Sender: FDA-Public Use
  Company Number: US-ABBVIE-21K-163-4032021-00

PATIENT
  Age: 64 Year
  Sex: Female
  Weight: 61.290 kg

DRUGS (4)
  1. HUMIRA [Suspect]
     Active Substance: ADALIMUMAB
     Indication: Psoriatic arthropathy
     Route: 058
     Dates: start: 201907
  2. HUMIRA [Suspect]
     Active Substance: ADALIMUMAB
     Indication: Osteoarthritis
  3. HUMIRA [Suspect]
     Active Substance: ADALIMUMAB
     Indication: Scleritis
  4. HUMIRA [Suspect]
     Active Substance: ADALIMUMAB
     Indication: HLA-B*27 positive

REACTIONS (2)
  - Sinusitis [Recovering/Resolving]
  - Urinary tract infection [Recovered/Resolved]

NARRATIVE: CASE EVENT DATE: 20210705
